FAERS Safety Report 6184082-5 (Version None)
Quarter: 2009Q2

REPORT INFORMATION
  Report Type: 
  Country: None (occurrence: None)
  Receive Date: 20090506
  Receipt Date: 20090506
  Transmission Date: 20091009
  Serious: No
  Sender: FDA-Public Use
  Company Number: None

PATIENT
  Age: 76 Year
  Sex: Male
  Weight: 87.5442 kg

DRUGS (1)
  1. PACERONE [Suspect]
     Indication: ARRHYTHMIA
     Dosage: 200 MG AFTER BOLUS DOSAGE DAILY PO
     Route: 048
     Dates: start: 20080907, end: 20080925

REACTIONS (4)
  - BLINDNESS [None]
  - COLOUR BLINDNESS [None]
  - NEUROPATHY PERIPHERAL [None]
  - OPTIC NERVE DISORDER [None]
